FAERS Safety Report 8049032-5 (Version None)
Quarter: 2012Q1

REPORT INFORMATION
  Report Type: 
  Country: None (occurrence: None)
  Receive Date: 20120117
  Receipt Date: 20120111
  Transmission Date: 20120608
  Serious: Yes (Other)
  Sender: FDA-Public Use
  Company Number: PHHO2012BR000473

PATIENT
  Sex: Female
  Weight: 61 kg

DRUGS (4)
  1. BLINDED PLACEBO [Suspect]
     Indication: CARDIOVASCULAR DISORDER
     Dosage: CODE NOT BROKEN
     Route: 048
     Dates: start: 20100125, end: 20111227
  2. BLINDED ALISKIREN [Suspect]
     Indication: CARDIOVASCULAR DISORDER
     Dosage: CODE NOT BROKEN
     Route: 048
     Dates: start: 20100125, end: 20111227
  3. BLINDED NO TREATMENT RECEIVED [Suspect]
     Indication: CARDIOVASCULAR DISORDER
     Dosage: CODE NOT BROKEN
     Route: 048
     Dates: start: 20100125, end: 20111227
  4. AMLODIPINE [Suspect]
     Indication: HYPERTENSION
     Dosage: 20 MG, TID
     Route: 048
     Dates: start: 20111216, end: 20120101

REACTIONS (1)
  - RENAL FAILURE CHRONIC [None]
